FAERS Safety Report 7815853-4 (Version None)
Quarter: 2011Q4

REPORT INFORMATION
  Report Type: 
  Country: None (occurrence: None)
  Receive Date: 20111014
  Receipt Date: 20111010
  Transmission Date: 20120403
  Serious: Yes (Other)
  Sender: FDA-Public Use
  Company Number: US-ABBOTT-11P-163-0863027-00

PATIENT
  Sex: Female
  Weight: 68.1 kg

DRUGS (11)
  1. HUMIRA [Suspect]
     Indication: PSORIASIS
  2. HUMIRA [Suspect]
     Indication: PSORIATIC ARTHROPATHY
     Dates: start: 20100301
  3. SIMVASTATIN [Concomitant]
     Indication: PLATELET COUNT ABNORMAL
  4. VITAMIN D [Concomitant]
     Indication: VITAMIN SUPPLEMENTATION
  5. ZYRTEC [Concomitant]
     Indication: RHINORRHOEA
  6. METHOTREXATE [Suspect]
     Indication: PSORIATIC ARTHROPATHY
  7. EVISTA [Concomitant]
     Indication: HORMONE REPLACEMENT THERAPY
  8. PLAVIX [Suspect]
     Dates: start: 20110101
  9. ASPIRIN [Suspect]
  10. FOLIC ACID [Concomitant]
     Indication: VITAMIN SUPPLEMENTATION
  11. ASPIRIN [Concomitant]
     Indication: PRODUCT USED FOR UNKNOWN INDICATION
     Dosage: AT BEDTIME

REACTIONS (6)
  - PERIPHERAL ARTERIAL OCCLUSIVE DISEASE [None]
  - INJECTION SITE HAEMORRHAGE [None]
  - INJECTION SITE PAIN [None]
  - PRURITUS [None]
  - PERIPHERAL VASCULAR DISORDER [None]
  - FATIGUE [None]
